FAERS Safety Report 11853423 (Version 2)
Quarter: 2015Q4

REPORT INFORMATION
  Report Type: Report from Study
  Country: US (occurrence: US)
  Receive Date: 20151218
  Receipt Date: 20151225
  Transmission Date: 20160305
  Serious: Yes (Life-Threatening, Hospitalization, Other)
  Sender: FDA-Public Use
  Company Number: US-BRISTOL-MYERS SQUIBB COMPANY-BMS-2015-089080

PATIENT
  Sex: Female

DRUGS (2)
  1. YERVOY [Suspect]
     Active Substance: IPILIMUMAB
     Indication: MALIGNANT MELANOMA
     Dosage: UNK
     Route: 065
     Dates: start: 201412, end: 20150604
  2. NIVOLUMAB [Suspect]
     Active Substance: NIVOLUMAB
     Indication: MALIGNANT MELANOMA
     Dosage: UNK
     Route: 065
     Dates: start: 201412, end: 20150604

REACTIONS (8)
  - Abdominal pain [Unknown]
  - Arthralgia [Unknown]
  - Adrenal disorder [Unknown]
  - Vision blurred [Unknown]
  - Metastases to central nervous system [Unknown]
  - Surgery [Unknown]
  - Embolism venous [Unknown]
  - Constipation [Unknown]
